FAERS Safety Report 9372010 (Version 1)
Quarter: 2013Q2

REPORT INFORMATION
  Report Type: Report from Study
  Country: US (occurrence: US)
  Receive Date: 20130627
  Receipt Date: 20130627
  Transmission Date: 20140414
  Serious: Yes (Other)
  Sender: FDA-Public Use
  Company Number: US-MYLANLABS-2012S1012712

PATIENT
  Age: 48 Year
  Sex: Female
  Weight: 115.67 kg

DRUGS (7)
  1. CLOZAPINE TABLETS [Suspect]
     Indication: SCHIZOAFFECTIVE DISORDER
     Dates: end: 20121029
  2. CELEXA [Concomitant]
     Route: 048
  3. VISTARIL [Concomitant]
     Indication: ANXIETY
     Route: 048
  4. DEPAKOTE ER [Concomitant]
     Route: 048
  5. COGENTIN [Concomitant]
     Route: 048
  6. TRAZODONE [Concomitant]
     Route: 048
  7. LORAZEPAM [Concomitant]
     Route: 048

REACTIONS (2)
  - Granulocytopenia [Recovered/Resolved]
  - Leukopenia [Recovered/Resolved]
